FAERS Safety Report 22606259 (Version 2)
Quarter: 2023Q2

REPORT INFORMATION
  Report Type: Spontaneous
  Country: US (occurrence: US)
  Receive Date: 20230615
  Receipt Date: 20230620
  Transmission Date: 20230722
  Serious: No
  Sender: FDA-Public Use
  Company Number: US-PFIZER INC-202300219712

PATIENT
  Age: 3 Year
  Sex: Male
  Weight: 37.65 kg

DRUGS (6)
  1. GENOTROPIN [Suspect]
     Active Substance: SOMATROPIN
     Indication: Hepatic steatosis
     Dosage: UNK
  2. GENOTROPIN [Suspect]
     Active Substance: SOMATROPIN
     Dosage: 0.8 MG
     Route: 058
  3. DESMOPRESSIN [Concomitant]
     Active Substance: DESMOPRESSIN
     Indication: Diabetes insipidus
     Dosage: 2X/DAY (0.1 MG, 3 QUARTERS OF TAB IN MORNING; HALF TAB AT NIGHT)
     Route: 048
  4. HYDROCORTISONE [Concomitant]
     Active Substance: HYDROCORTISONE
     Indication: Pyrexia
     Dosage: 3X/DAY (HALF TABLET EVERY MORNING, NOON, EVENING)
     Route: 048
  5. HYDROCORTISONE [Concomitant]
     Active Substance: HYDROCORTISONE
     Dosage: 3X/DAY (5 MG, HALF TAB EVERY MORNING, NOON, EVENING)
     Route: 048
  6. LEVOTHYROXINE [Concomitant]
     Active Substance: LEVOTHYROXINE
     Indication: Thyroid disorder
     Dosage: 0.05 MG, 1X/DAY (IN THE MORNING BEFORE FOOD)
     Route: 048

REACTIONS (5)
  - Incorrect dose administered by device [Unknown]
  - Device information output issue [Unknown]
  - Expired device used [Unknown]
  - Drug dose omission by device [Unknown]
  - Off label use [Unknown]

NARRATIVE: CASE EVENT DATE: 20230605
